FAERS Safety Report 12251608 (Version 1)
Quarter: 2016Q2

REPORT INFORMATION
  Report Type: Spontaneous
  Country: US (occurrence: US)
  Receive Date: 20160410
  Receipt Date: 20160410
  Transmission Date: 20160815
  Serious: No
  Sender: FDA-Public Use
  Company Number: US-JNJFOC-20160321170

PATIENT
  Sex: Male

DRUGS (1)
  1. INVEGA SUSTENNA [Suspect]
     Active Substance: PALIPERIDONE PALMITATE
     Indication: PRODUCT USED FOR UNKNOWN INDICATION
     Route: 030
     Dates: start: 2014

REACTIONS (7)
  - Fear of injection [Unknown]
  - Aggression [Unknown]
  - Activities of daily living impaired [Unknown]
  - Refusal of treatment by patient [Unknown]
  - Frustration tolerance decreased [Unknown]
  - Abnormal behaviour [Unknown]
  - Asthenia [Unknown]
